FAERS Safety Report 25352446 (Version 1)
Quarter: 2025Q2

REPORT INFORMATION
  Report Type: Spontaneous
  Country: IT (occurrence: IT)
  Receive Date: 20250523
  Receipt Date: 20250523
  Transmission Date: 20250716
  Serious: Yes (Other)
  Sender: LUNDBECK
  Company Number: None

PATIENT
  Age: 37 Year
  Sex: Male

DRUGS (19)
  1. CLOBAZAM [Suspect]
     Active Substance: CLOBAZAM
     Indication: Lennox-Gastaut syndrome
  2. VIGABATRIN [Suspect]
     Active Substance: VIGABATRIN
     Indication: Lennox-Gastaut syndrome
  3. PHENOBARBITAL [Suspect]
     Active Substance: PHENOBARBITAL
     Indication: Lennox-Gastaut syndrome
     Dosage: 75 MG, QD
  4. CARBAMAZEPINE [Suspect]
     Active Substance: CARBAMAZEPINE
     Indication: Lennox-Gastaut syndrome
  5. CLONAZEPAM [Suspect]
     Active Substance: CLONAZEPAM
     Indication: Lennox-Gastaut syndrome
  6. LEVETIRACETAM [Suspect]
     Active Substance: LEVETIRACETAM
     Indication: Lennox-Gastaut syndrome
  7. LAMOTRIGINE [Suspect]
     Active Substance: LAMOTRIGINE
     Indication: Lennox-Gastaut syndrome
  8. OXCARBAZEPINE [Suspect]
     Active Substance: OXCARBAZEPINE
     Indication: Lennox-Gastaut syndrome
  9. VALPROATE SODIUM [Suspect]
     Active Substance: VALPROATE SODIUM
     Indication: Lennox-Gastaut syndrome
  10. ZONISAMIDE [Suspect]
     Active Substance: ZONISAMIDE
     Indication: Lennox-Gastaut syndrome
  11. ETHOSUXIMIDE [Suspect]
     Active Substance: ETHOSUXIMIDE
     Indication: Lennox-Gastaut syndrome
  12. FELBAMATE [Suspect]
     Active Substance: FELBAMATE
     Indication: Lennox-Gastaut syndrome
  13. GABAPENTIN [Suspect]
     Active Substance: GABAPENTIN
     Indication: Lennox-Gastaut syndrome
  14. PERAMPANEL [Suspect]
     Active Substance: PERAMPANEL
     Indication: Lennox-Gastaut syndrome
  15. PHENYTOIN [Suspect]
     Active Substance: PHENYTOIN
     Indication: Lennox-Gastaut syndrome
  16. RUFINAMIDE [Suspect]
     Active Substance: RUFINAMIDE
     Indication: Lennox-Gastaut syndrome
  17. TIAGABINE [Suspect]
     Active Substance: TIAGABINE
     Indication: Lennox-Gastaut syndrome
  18. TOPIRAMATE [Suspect]
     Active Substance: TOPIRAMATE
     Indication: Lennox-Gastaut syndrome
  19. CENOBAMATE [Suspect]
     Active Substance: CENOBAMATE
     Indication: Lennox-Gastaut syndrome
     Dosage: 12.5 MG, QD

REACTIONS (3)
  - Somnolence [Recovered/Resolved]
  - Drug interaction [Recovered/Resolved]
  - Drug ineffective [Unknown]
